FAERS Safety Report 12434508 (Version 5)
Quarter: 2016Q3

REPORT INFORMATION
  Report Type: Report from Study
  Country: US (occurrence: US)
  Receive Date: 20160603
  Receipt Date: 20160831
  Transmission Date: 20161109
  Serious: Yes (Hospitalization)
  Sender: FDA-Public Use
  Company Number: US-ACTELION-A-NJ2016-136949

PATIENT
  Age: 65 Year
  Sex: Female

DRUGS (4)
  1. COUMADIN [Concomitant]
     Active Substance: WARFARIN SODIUM
  2. OPSUMIT [Suspect]
     Active Substance: MACITENTAN
     Indication: PULMONARY ARTERIAL HYPERTENSION
     Dosage: 10 MG, QD
     Route: 048
     Dates: start: 20150911
  3. REVATIO [Concomitant]
     Active Substance: SILDENAFIL CITRATE
  4. SILDENAFIL. [Concomitant]
     Active Substance: SILDENAFIL

REACTIONS (11)
  - Faeces discoloured [Unknown]
  - Obstructive airways disorder [Unknown]
  - Internal haemorrhage [Unknown]
  - Sialoadenitis [Unknown]
  - Salivary duct obstruction [Recovering/Resolving]
  - Lymphadenopathy [Unknown]
  - Mechanical ventilation [Unknown]
  - Haematocrit decreased [Unknown]
  - Tracheostomy [Unknown]
  - Anaemia [Unknown]
  - Transfusion [Unknown]
